FAERS Safety Report 13645235 (Version 1)
Quarter: 2017Q2

REPORT INFORMATION
  Report Type: Spontaneous
  Country: US (occurrence: US)
  Receive Date: 20170612
  Receipt Date: 20170612
  Transmission Date: 20170830
  Serious: No
  Sender: FDA-Public Use
  Company Number: US-ROCHE-1355797

PATIENT
  Age: 64 Year
  Sex: Female

DRUGS (5)
  1. IMIPRAMINE [Concomitant]
     Active Substance: IMIPRAMINE
  2. LOSARTAN. [Concomitant]
     Active Substance: LOSARTAN
  3. ATORVASTATIN [Concomitant]
     Active Substance: ATORVASTATIN
  4. ASPIRIN. [Concomitant]
     Active Substance: ASPIRIN
  5. XELODA [Suspect]
     Active Substance: CAPECITABINE
     Indication: COLON CANCER
     Route: 048
     Dates: start: 20131120

REACTIONS (2)
  - Pain [Recovered/Resolved]
  - Onychoclasis [Unknown]

NARRATIVE: CASE EVENT DATE: 20140223
